FAERS Safety Report 9069113 (Version 2)
Quarter: 2013Q1

REPORT INFORMATION
  Report Type: Spontaneous
  Country: US (occurrence: US)
  Receive Date: 20130215
  Receipt Date: 20130308
  Transmission Date: 20140127
  Serious: No
  Sender: FDA-Public Use
  Company Number: US-PFIZER INC-2013060250

PATIENT
  Age: 53 Year
  Sex: Female

DRUGS (4)
  1. PRISTIQ [Suspect]
     Dosage: 50 MG, UNK
     Route: 048
     Dates: start: 201212, end: 20130107
  2. PRISTIQ [Suspect]
     Dosage: 100 MG, DAILY
     Route: 048
     Dates: start: 20130108, end: 20130129
  3. TRAZODONE [Concomitant]
     Dosage: UNK
  4. LORAZEPAM [Concomitant]
     Dosage: UNK

REACTIONS (1)
  - Drug ineffective [Unknown]
